FAERS Safety Report 4329061-5 (Version None)
Quarter: 2004Q1

REPORT INFORMATION
  Report Type: 
  Country: None (occurrence: None)
  Receive Date: 20040319
  Receipt Date: 20040204
  Transmission Date: 20041129
  Serious: No
  Sender: FDA-Public Use
  Company Number: US-JNJFOC-20031101428

PATIENT
  Age: 32 Year
  Sex: Female
  Weight: 85.9566 kg

DRUGS (3)
  1. ORTHO EVRA [Suspect]
     Indication: CONTRACEPTION
     Dosage: 1 DOSE(S), 3 IN 4 WEEK, TRANSDERMAL
     Route: 062
     Dates: start: 20030922, end: 20031101
  2. ALLEGRA-D [Concomitant]
  3. FLONASE NASAL SPRAY (FLUTICASONE PROPIONATE) [Concomitant]

REACTIONS (3)
  - HEADACHE [None]
  - MALAISE [None]
  - NAUSEA [None]
